FAERS Safety Report 26115791 (Version 2)
Quarter: 2025Q4

REPORT INFORMATION
  Report Type: Spontaneous
  Country: JP (occurrence: JP)
  Receive Date: 20251203
  Receipt Date: 20251224
  Transmission Date: 20260118
  Serious: Yes (Other)
  Sender: ASTELLAS
  Company Number: JP-ASTELLAS-2025-AER-066062

PATIENT
  Age: 6 Decade
  Sex: Male

DRUGS (4)
  1. PADCEV [Suspect]
     Active Substance: ENFORTUMAB VEDOTIN-EJFV
     Indication: Malignant neoplasm of renal pelvis
     Route: 065
  2. PEMBROLIZUMAB [Suspect]
     Active Substance: PEMBROLIZUMAB
     Indication: Malignant neoplasm of renal pelvis
     Route: 065
  3. GEMCITABINE [Concomitant]
     Active Substance: GEMCITABINE
     Indication: Neoadjuvant therapy
     Route: 065
  4. CISPLATIN [Concomitant]
     Active Substance: CISPLATIN
     Indication: Neoadjuvant therapy
     Route: 065

REACTIONS (2)
  - Colitis [Unknown]
  - Skin disorder [Unknown]
